FAERS Safety Report 5107900-8 (Version None)
Quarter: 2006Q3

REPORT INFORMATION
  Report Type: 
  Country: None (occurrence: None)
  Receive Date: 20060914
  Receipt Date: 20060822
  Transmission Date: 20061208
  Serious: Yes (Hospitalization)
  Sender: FDA-Public Use
  Company Number: 2006SP000185

PATIENT
  Age: 62 Year
  Sex: Male
  Weight: 53 kg

DRUGS (7)
  1. PEG-INTRON [Suspect]
     Indication: HEPATITIS C
     Dosage: 80 MCG; QW; SC
     Route: 058
     Dates: start: 20060811, end: 20060818
  2. REBETOL [Suspect]
     Indication: HEPATITIS C
     Dosage: 600 MG; QD; PO
     Route: 048
     Dates: start: 20060811, end: 20060820
  3. BASEN (CON.) [Concomitant]
  4. LENDORMIN (CON.) [Concomitant]
  5. MAGMITT (CON.) [Concomitant]
  6. JUVELA N  (CON.) [Concomitant]
  7. METHYCOBAL (CON.) [Concomitant]

REACTIONS (2)
  - HEADACHE [None]
  - THALAMUS HAEMORRHAGE [None]
